FAERS Safety Report 5822728-9 (Version None)
Quarter: 2008Q3

REPORT INFORMATION
  Report Type: 
  Country: None (occurrence: None)
  Receive Date: 20080725
  Receipt Date: 20071023
  Transmission Date: 20090109
  Serious: No
  Sender: FDA-Public Use
  Company Number: US-AMGEN-KDL249556

PATIENT
  Sex: Male
  Weight: 104.4 kg

DRUGS (14)
  1. PROCRIT [Suspect]
     Indication: ANAEMIA
     Dates: start: 20071015
  2. BLOOD CELLS, PACKED HUMAN [Concomitant]
  3. FERROUS SULFATE TAB [Concomitant]
  4. AMLODIPINE [Concomitant]
  5. HYDROCHLOROTHIAZIDE [Concomitant]
  6. PLETAL [Concomitant]
  7. ZOCOR [Concomitant]
  8. ZETIA [Concomitant]
  9. ACTOS [Concomitant]
  10. ENALAPRIL MALEATE [Concomitant]
  11. LANTUS [Concomitant]
  12. NOVOLOG [Concomitant]
  13. ASPIRIN [Concomitant]
  14. MULTI-VITAMINS [Concomitant]

REACTIONS (1)
  - BLOOD GLUCOSE INCREASED [None]
